FAERS Safety Report 10876569 (Version 2)
Quarter: 2015Q1

REPORT INFORMATION
  Report Type: Spontaneous
  Country: US (occurrence: US)
  Receive Date: 20150301
  Receipt Date: 20150304
  Transmission Date: 20150721
  Serious: Yes (Hospitalization, Other)
  Sender: FDA-Public Use
  Company Number: US-TEVA-543350USA

PATIENT
  Age: 58 Year
  Sex: Male

DRUGS (1)
  1. COPAXONE [Suspect]
     Active Substance: GLATIRAMER ACETATE
     Indication: MULTIPLE SCLEROSIS
     Dates: start: 20040212

REACTIONS (4)
  - Diarrhoea [Unknown]
  - Adverse event [Unknown]
  - Primary progressive multiple sclerosis [Unknown]
  - Blindness [Unknown]

NARRATIVE: CASE EVENT DATE: 20150213
